FAERS Safety Report 15307707 (Version 2)
Quarter: 2018Q4

REPORT INFORMATION
  Report Type: Spontaneous
  Country: JP (occurrence: JP)
  Receive Date: 20180822
  Receipt Date: 20181003
  Transmission Date: 20190204
  Serious: Yes (Life-Threatening)
  Sender: FDA-Public Use
  Company Number: JP-ROCHE-2172175

PATIENT
  Age: 1 Year
  Sex: Male
  Weight: 13 kg

DRUGS (6)
  1. L-CARBOCISTEINE [Concomitant]
     Active Substance: CARBOCYSTEINE
     Dosage: DOSAGE IS UNCERTAIN.
     Route: 065
     Dates: start: 20180807
  2. FAMOTIDINE. [Concomitant]
     Active Substance: FAMOTIDINE
     Dosage: DOSAGE IS UNCERTAIN.
     Route: 065
     Dates: start: 20180809, end: 20180815
  3. PIARLE [Concomitant]
     Dosage: DOSAGE IS UNCERTAIN.
     Route: 048
     Dates: start: 20180805
  4. ACTEMRA [Suspect]
     Active Substance: TOCILIZUMAB
     Indication: STILL^S DISEASE
     Route: 041
     Dates: start: 20180810
  5. DECADRON [Concomitant]
     Active Substance: DEXAMETHASONE
     Dosage: DOSE INTERVAL UNCERTAINTY
     Route: 048
     Dates: start: 20180811, end: 20180814
  6. BAKTAR [Concomitant]
     Active Substance: SULFAMETHOXAZOLE\TRIMETHOPRIM
     Dosage: DOSAGE IS UNCERTAIN.
     Route: 048
     Dates: start: 20180813, end: 20180815

REACTIONS (3)
  - Pyrexia [Unknown]
  - Haemophagocytic lymphohistiocytosis [Recovered/Resolved]
  - Infusion related reaction [Unknown]

NARRATIVE: CASE EVENT DATE: 20180812
